FAERS Safety Report 16956769 (Version 1)
Quarter: 2019Q4

REPORT INFORMATION
  Report Type: Spontaneous
  Country: US (occurrence: US)
  Receive Date: 20190905
  Receipt Date: 20190905
  Transmission Date: 20200122
  Serious: Yes (Other)
  Sender: FDA-Public Use
  Company Number: None

PATIENT
  Sex: Female

DRUGS (2)
  1. ENBREL [Suspect]
     Active Substance: ETANERCEPT
     Indication: RHEUMATOID ARTHRITIS
     Route: 058
     Dates: start: 20171113, end: 20190620
  2. HUMIRA [Suspect]
     Active Substance: ADALIMUMAB

REACTIONS (5)
  - Upper respiratory tract infection [None]
  - Intestinal obstruction [None]
  - Pulmonary tuberculosis [None]
  - Pulmonary cavitation [None]
  - Weight decreased [None]
